FAERS Safety Report 8650501 (Version 3)
Quarter: 2013Q1

REPORT INFORMATION
  Report Type: Spontaneous
  Country: US (occurrence: US)
  Receive Date: 20120705
  Receipt Date: 20130225
  Transmission Date: 20140127
  Serious: No
  Sender: FDA-Public Use
  Company Number: US-ASTRAZENECA-2010SE60778

PATIENT
  Age: 45 Year
  Sex: Female

DRUGS (2)
  1. SEROQUEL XR [Suspect]
     Indication: DEPRESSION
     Route: 048
  2. SEROQUEL XR [Suspect]
     Indication: POST-TRAUMATIC STRESS DISORDER
     Route: 048

REACTIONS (20)
  - Anxiety [Unknown]
  - Arthralgia [Unknown]
  - Back pain [Unknown]
  - Bradyphrenia [Unknown]
  - Chills [Unknown]
  - Depressed level of consciousness [Unknown]
  - Depression [Unknown]
  - Feeling abnormal [Unknown]
  - Feeling abnormal [Unknown]
  - Feelings of worthlessness [Unknown]
  - Influenza like illness [Unknown]
  - Pain in extremity [Unknown]
  - Panic attack [Unknown]
  - Post-traumatic stress disorder [Unknown]
  - Psychiatric symptom [Unknown]
  - Malaise [Unknown]
  - Road traffic accident [Unknown]
  - Schizophrenia [Unknown]
  - Drug dose omission [Unknown]
  - Drug ineffective [Unknown]
